FAERS Safety Report 26126890 (Version 1)
Quarter: 2025Q4

REPORT INFORMATION
  Report Type: Spontaneous
  Country: US (occurrence: None)
  Receive Date: 20251205
  Receipt Date: 20251205
  Transmission Date: 20260118
  Serious: Yes (Other)
  Sender: FDA-CTU
  Company Number: None

PATIENT
  Age: 71 Year
  Sex: Female

DRUGS (1)
  1. VIJOICE [Suspect]
     Active Substance: ALPELISIB
     Indication: Breast cancer
     Dosage: 250 MG DAILY ORAL ?
     Route: 048
     Dates: start: 20251022, end: 20251124

REACTIONS (1)
  - Lethargy [None]

NARRATIVE: CASE EVENT DATE: 20251205
